FAERS Safety Report 9360920 (Version 2)
Quarter: 2013Q2

REPORT INFORMATION
  Report Type: Report from Study
  Country: US (occurrence: US)
  Receive Date: 20130621
  Receipt Date: 20130624
  Transmission Date: 20140414
  Serious: Yes (Hospitalization)
  Sender: FDA-Public Use
  Company Number: GXBR2013US001248

PATIENT
  Age: 79 Year
  Sex: Male
  Weight: 81.18 kg

DRUGS (2)
  1. ENOXAPARIN SODIUM [Suspect]
     Indication: THROMBOSIS
     Dosage: 30 MG, BID
     Route: 058
     Dates: start: 20130410
  2. GABAPENTIN [Concomitant]
     Indication: TRIGEMINAL NEURALGIA
     Dosage: UNK DF, UNK
     Dates: start: 2007

REACTIONS (4)
  - Pneumonia [Recovering/Resolving]
  - Pneumothorax [Recovered/Resolved]
  - Dyspnoea [Not Recovered/Not Resolved]
  - Non-cardiac chest pain [Unknown]
